FAERS Safety Report 25801750 (Version 1)
Quarter: 2025Q3

REPORT INFORMATION
  Report Type: Spontaneous
  Country: US (occurrence: None)
  Receive Date: 20250912
  Receipt Date: 20250912
  Transmission Date: 20251020
  Serious: Yes (Disabling)
  Sender: FDA-CTU
  Company Number: None

PATIENT
  Age: 72 Year
  Sex: Female
  Weight: 59.4 kg

DRUGS (11)
  1. RISEDRONATE SODIUM [Suspect]
     Active Substance: RISEDRONATE SODIUM
     Indication: Osteoporosis
     Route: 048
     Dates: start: 20250901, end: 20250902
  2. Lipitor 40mg qhs [Concomitant]
  3. Prozac  10 mg [Concomitant]
  4. Colace 100 mg bid [Concomitant]
  5. Nasocort spray 2 puffs each nostril daily [Concomitant]
  6. CoQ10 200 mg daily [Concomitant]
  7. Vit D3 50 mcg qd [Concomitant]
  8. Calcium 600 mg hs [Concomitant]
  9. Fish oil 2000 mg bid [Concomitant]
  10. Biotin 10,000 qd [Concomitant]
  11. D-Mannose 200 mg qd [Concomitant]

REACTIONS (10)
  - Fatigue [None]
  - Burning sensation [None]
  - Arthralgia [None]
  - Myalgia [None]
  - Bone pain [None]
  - Musculoskeletal stiffness [None]
  - Joint range of motion decreased [None]
  - Musculoskeletal stiffness [None]
  - Musculoskeletal stiffness [None]
  - Pain in extremity [None]

NARRATIVE: CASE EVENT DATE: 20250902
